FAERS Safety Report 23678209 (Version 1)
Quarter: 2024Q1

REPORT INFORMATION
  Report Type: Spontaneous
  Country: FR (occurrence: FR)
  Receive Date: 20240327
  Receipt Date: 20240327
  Transmission Date: 20240410
  Serious: Yes (Other)
  Sender: FDA-Public Use
  Company Number: None

PATIENT
  Age: 6 Year
  Sex: Female
  Weight: 15 kg

DRUGS (4)
  1. ELEXACAFTOR\IVACAFTOR\TEZACAFTOR [Suspect]
     Active Substance: ELEXACAFTOR\IVACAFTOR\TEZACAFTOR
     Indication: Cystic fibrosis
     Dosage: 2 DOSAGE FORM, QD
     Route: 048
     Dates: start: 20230627, end: 20240216
  2. KALYDECO [Suspect]
     Active Substance: IVACAFTOR
     Indication: Cystic fibrosis
     Dosage: 1 DOSAGE FORM, QD
     Route: 048
     Dates: start: 20230627, end: 20240216
  3. EUROBIOL 25000 [Concomitant]
     Dosage: 5 DOSAGE FORM, QD
     Route: 048
  4. FLUTICASONE PROPIONATE [Concomitant]
     Active Substance: FLUTICASONE PROPIONATE
     Dosage: 250MG/DOSE

REACTIONS (2)
  - Ocular rosacea [Recovering/Resolving]
  - Rosacea [Recovering/Resolving]

NARRATIVE: CASE EVENT DATE: 20231101
